FAERS Safety Report 12176929 (Version 1)
Quarter: 2016Q1

REPORT INFORMATION
  Report Type: Spontaneous
  Country: AU (occurrence: AU)
  Receive Date: 20160314
  Receipt Date: 20160314
  Transmission Date: 20160526
  Serious: Yes (Other)
  Sender: FDA-Public Use
  Company Number: AU-ALEXION PHARMACEUTICALS INC-A201601660

PATIENT
  Age: 7 Year
  Sex: Female

DRUGS (2)
  1. SOLIRIS [Suspect]
     Active Substance: ECULIZUMAB
     Dosage: UNK
     Route: 042
     Dates: start: 20160303
  2. SOLIRIS [Suspect]
     Active Substance: ECULIZUMAB
     Indication: HAEMOLYTIC URAEMIC SYNDROME
     Dosage: UNK
     Route: 042
     Dates: end: 201601

REACTIONS (7)
  - Influenza like illness [Unknown]
  - Blood lactate dehydrogenase abnormal [Unknown]
  - Blood urea increased [Unknown]
  - Haptoglobin decreased [Unknown]
  - Platelet count decreased [Unknown]
  - Arterial stenosis [Unknown]
  - Catheter site scar [Unknown]

NARRATIVE: CASE EVENT DATE: 20160112
